FAERS Safety Report 7317684-0 (Version None)
Quarter: 2011Q1

REPORT INFORMATION
  Report Type: 
  Country: None (occurrence: None)
  Receive Date: 20110226
  Receipt Date: 20110105
  Transmission Date: 20110831
  Serious: No
  Sender: FDA-Public Use
  Company Number: US-ALLERGAN-1015456US

PATIENT
  Age: 30 Year
  Sex: Female
  Weight: 47.619 kg

DRUGS (2)
  1. BOTOX COSMETIC [Suspect]
     Indication: SKIN WRINKLING
     Dosage: 15 UNITS, SINGLE
     Route: 030
     Dates: start: 20101122, end: 20101122
  2. BOTOX COSMETIC [Suspect]

REACTIONS (2)
  - SWOLLEN TEAR DUCT [None]
  - MASS [None]
